FAERS Safety Report 6391368-8 (Version None)
Quarter: 2009Q4

REPORT INFORMATION
  Report Type: 
  Country: None (occurrence: None)
  Receive Date: 20091006
  Receipt Date: 20091006
  Transmission Date: 20100525
  Serious: Yes (Other)
  Sender: FDA-Public Use
  Company Number: None

PATIENT
  Age: 35 Year
  Sex: Female
  Weight: 78.4723 kg

DRUGS (1)
  1. ZYRTEC [Suspect]
     Indication: SEASONAL ALLERGY
     Dosage: 10MG ONCE DAY PO APPROX 5 YEARS
     Route: 048

REACTIONS (8)
  - ANXIETY [None]
  - DERMATITIS [None]
  - DRUG WITHDRAWAL SYNDROME [None]
  - ERYTHEMA [None]
  - PRURITUS [None]
  - PRURITUS GENERALISED [None]
  - QUALITY OF LIFE DECREASED [None]
  - THROAT IRRITATION [None]
